FAERS Safety Report 8441682 (Version 2)
Quarter: 2013Q2

REPORT INFORMATION
  Report Type: Spontaneous
  Country: CA (occurrence: CA)
  Receive Date: 20120305
  Receipt Date: 20130415
  Transmission Date: 20140414
  Serious: Yes (Other)
  Sender: FDA-Public Use
  Company Number: CA-JNJFOC-20120214257

PATIENT
  Age: 66 Year
  Sex: Male
  Weight: 85 kg

DRUGS (20)
  1. REMICADE [Suspect]
     Indication: PSORIATIC ARTHROPATHY
     Route: 042
     Dates: start: 20070418
  2. CRESTOR [Concomitant]
  3. CARBOCAL D [Concomitant]
     Route: 065
  4. ACTONEL [Concomitant]
     Route: 065
  5. HYDROVAL [Concomitant]
     Route: 065
  6. DOVONEX [Concomitant]
     Route: 065
  7. METHOTREXATE [Concomitant]
     Route: 065
     Dates: start: 2007
  8. LOTRIDERM [Concomitant]
     Route: 061
  9. ACETAMINOPHEN [Concomitant]
  10. OLMETEC [Concomitant]
     Route: 065
  11. CANESTEN [Concomitant]
  12. IMURAN [Concomitant]
     Route: 065
  13. FOLIC ACID [Concomitant]
     Route: 065
  14. OMEGA 3 [Concomitant]
     Route: 065
  15. CALCIUM/VIT D [Concomitant]
     Route: 065
  16. FERROUS SULPHATE [Concomitant]
     Route: 065
  17. PROBIOTIC [Concomitant]
     Route: 065
  18. PANTOLOC [Concomitant]
     Route: 065
  19. POTASSIUM [Concomitant]
     Route: 065
  20. MEZAVANT [Concomitant]
     Route: 065

REACTIONS (1)
  - Malignant melanoma [Recovered/Resolved]
